FAERS Safety Report 6718944-4 (Version None)
Quarter: 2010Q2

REPORT INFORMATION
  Report Type: 
  Country: None (occurrence: None)
  Receive Date: 20100511
  Receipt Date: 20100506
  Transmission Date: 20101027
  Serious: Yes (Death, Other)
  Sender: FDA-Public Use
  Company Number: TW-JNJFOC-20100501868

PATIENT
  Age: 47 Year
  Sex: Male

DRUGS (14)
  1. CRAVIT [Suspect]
     Indication: MYCOBACTERIUM AVIUM COMPLEX INFECTION
     Route: 048
  2. ITRACONAZOLE [Suspect]
     Indication: PENICILLIOSIS
     Route: 065
  3. ETHAMBUTOL [Suspect]
     Indication: MYCOBACTERIUM AVIUM COMPLEX INFECTION
     Route: 065
  4. VALACYCLOVIR [Suspect]
     Indication: HERPES ZOSTER
     Route: 048
  5. CLARITHROMYCIN [Suspect]
     Indication: MYCOBACTERIUM AVIUM COMPLEX INFECTION
     Route: 065
  6. EFAVIRENZ [Concomitant]
     Indication: HIV INFECTION
     Route: 065
  7. LAMIVUDINE [Concomitant]
     Indication: HIV INFECTION
     Route: 065
  8. STAVUDINE [Concomitant]
     Indication: HIV INFECTION
     Route: 065
  9. ACYCLOVIR [Concomitant]
     Indication: HERPES ZOSTER
     Route: 042
  10. ACYCLOVIR [Concomitant]
     Route: 042
  11. ESTAZOLAM [Concomitant]
     Route: 065
  12. PREDNISOLONE [Concomitant]
     Route: 065
  13. PREDNISOLONE [Concomitant]
     Route: 065
  14. METOCLOPRAMIDE HYDROCHLORIDE [Concomitant]
     Route: 065

REACTIONS (7)
  - METABOLIC ACIDOSIS [None]
  - NEUTROPENIA [None]
  - PYREXIA [None]
  - RESPIRATORY FAILURE [None]
  - SEPTIC SHOCK [None]
  - STEVENS-JOHNSON SYNDROME [None]
  - TOXIC EPIDERMAL NECROLYSIS [None]
